FAERS Safety Report 6426303-7 (Version None)
Quarter: 2009Q4

REPORT INFORMATION
  Report Type: 
  Country: None (occurrence: None)
  Receive Date: 20091104
  Receipt Date: 20091029
  Transmission Date: 20100525
  Serious: Yes (Hospitalization)
  Sender: FDA-Public Use
  Company Number: US-AMGEN-QUU368929

PATIENT
  Sex: Female

DRUGS (26)
  1. ARANESP [Suspect]
     Indication: RENAL FAILURE CHRONIC
     Dates: start: 20060101
  2. METHYLPREDNISOLONE 4MG TAB [Concomitant]
  3. VANCOMYCIN [Concomitant]
  4. PHENERGAN HCL [Concomitant]
  5. LOMOTIL [Concomitant]
  6. MULTI-VITAMINS [Concomitant]
  7. FOLIC ACID [Concomitant]
  8. VENOFER [Concomitant]
  9. LASIX [Concomitant]
  10. MICONAZOLE NITRATE [Concomitant]
  11. ZOFRAN [Concomitant]
  12. VITAMIN B-12 [Concomitant]
  13. PERCOCET [Concomitant]
  14. ZOCOR [Concomitant]
  15. FLAGYL [Concomitant]
  16. LOPRESSOR [Concomitant]
  17. COZAAR [Concomitant]
  18. ZYVOX [Concomitant]
  19. LEVAQUIN [Concomitant]
  20. IMDUR [Concomitant]
  21. FORMOTEROL FUMARATE [Concomitant]
  22. ZETIA [Concomitant]
  23. PROTONIX [Concomitant]
  24. COMBIVENT [Concomitant]
  25. HEPARIN [Concomitant]
  26. NOVOLOG [Concomitant]

REACTIONS (4)
  - APLASIA PURE RED CELL [None]
  - CLOSTRIDIUM DIFFICILE COLITIS [None]
  - COLECTOMY [None]
  - ENTEROVESICAL FISTULA [None]
